FAERS Safety Report 5573031-6 (Version None)
Quarter: 2007Q4

REPORT INFORMATION
  Report Type: 
  Country: None (occurrence: None)
  Receive Date: 20071224
  Receipt Date: 20071218
  Transmission Date: 20080405
  Serious: Yes (Other)
  Sender: FDA-Public Use
  Company Number: GB-AVENTIS-200714590GDDC

PATIENT
  Sex: Male
  Weight: 3.84 kg

DRUGS (3)
  1. ARAVA [Suspect]
     Route: 064
     Dates: start: 20070105, end: 20070107
  2. ARAVA [Suspect]
     Route: 064
     Dates: start: 20070108, end: 20070122
  3. CO-CODAMOL [Suspect]
     Dosage: DOSE: 2 TABLETS
     Route: 048
     Dates: start: 20070129

REACTIONS (3)
  - ERB'S PALSY [None]
  - FOETAL DISTRESS SYNDROME [None]
  - SHOULDER DYSTOCIA [None]
